FAERS Safety Report 5477756-2 (Version None)
Quarter: 2007Q3

REPORT INFORMATION
  Report Type: 
  Country: None (occurrence: None)
  Receive Date: 20070831
  Receipt Date: 20070719
  Transmission Date: 20080115
  Serious: No
  Sender: FDA-Public Use
  Company Number: PHEH2007US10186

PATIENT
  Sex: Female
  Weight: 72 kg

DRUGS (1)
  1. EXJADE [Suspect]
     Indication: IRON OVERLOAD
     Dosage: 625 MG/KG, QD, ORAL
     Route: 048
     Dates: start: 20070709

REACTIONS (1)
  - CHROMATURIA [None]
